FAERS Safety Report 22538093 (Version 1)
Quarter: 2023Q2

REPORT INFORMATION
  Report Type: Spontaneous
  Country: AU (occurrence: AU)
  Receive Date: 20230608
  Receipt Date: 20230608
  Transmission Date: 20230721
  Serious: Yes (Other)
  Sender: FDA-Public Use
  Company Number: AU-002147023-NVSC2023AU125924

PATIENT
  Sex: Female

DRUGS (1)
  1. ESTRADIOL\NORETHINDRONE ACETATE [Suspect]
     Active Substance: ESTRADIOL\NORETHINDRONE ACETATE
     Indication: Product used for unknown indication
     Dosage: UNK, (50/140)
     Route: 065

REACTIONS (3)
  - Haemorrhage [Unknown]
  - Myalgia [Unknown]
  - Pain [Unknown]
